FAERS Safety Report 9713959 (Version 2)
Quarter: 2015Q3

REPORT INFORMATION
  Report Type: Spontaneous
  Country: US (occurrence: US)
  Receive Date: 20131126
  Receipt Date: 20150803
  Transmission Date: 20151125
  Serious: No
  Sender: FDA-Public Use
  Company Number: US-GILEAD-2008-0018306

PATIENT
  Age: 77 Year
  Sex: Male
  Weight: 72.57 kg

DRUGS (11)
  1. CELEBREX [Concomitant]
     Active Substance: CELECOXIB
  2. LASIX [Concomitant]
     Active Substance: FUROSEMIDE
  3. OXYGEN. [Concomitant]
     Active Substance: OXYGEN
  4. CELEXA [Concomitant]
     Active Substance: CITALOPRAM HYDROBROMIDE
  5. DIGOXIN. [Concomitant]
     Active Substance: DIGOXIN
  6. AVODART [Concomitant]
     Active Substance: DUTASTERIDE
  7. COUMADIN [Concomitant]
     Active Substance: WARFARIN SODIUM
  8. SPIRONOLACTONE. [Concomitant]
     Active Substance: SPIRONOLACTONE
  9. LETAIRIS [Suspect]
     Active Substance: AMBRISENTAN
     Indication: PULMONARY ARTERIAL HYPERTENSION
     Route: 048
     Dates: start: 20080922, end: 20080926
  10. REVATIO [Concomitant]
     Active Substance: SILDENAFIL CITRATE
  11. FLOMAX [Concomitant]
     Active Substance: TAMSULOSIN HYDROCHLORIDE

REACTIONS (4)
  - Nasal congestion [None]
  - Heart rate increased [None]
  - Fluid retention [None]
  - Dyspnoea [None]
